FAERS Safety Report 8784277 (Version 1)
Quarter: 2012Q4

REPORT INFORMATION
  Report Type: Spontaneous
  Country: SA (occurrence: None)
  Receive Date: 20120829
  Receipt Date: 20120829
  Transmission Date: 20130627
  Serious: Yes (Other)
  Sender: FDA-Public Use
  Company Number: 2012-003031

PATIENT
  Age: 72 Year
  Weight: 65.7 kg

DRUGS (2)
  1. DIDRONEL (ETIDRONATE DISODIUM) [Suspect]
     Indication: OSTEOPOROSIS
     Dosage: dose cyclic, oral
     Route: 048
     Dates: start: 2003, end: 2008
  2. ALENDRONATE SODIUM [Suspect]
     Dosage: once weekly, oral
     Route: 048

REACTIONS (7)
  - Atypical femur fracture [None]
  - Femur fracture [None]
  - Stress fracture [None]
  - Bone disorder [None]
  - Fall [None]
  - Groin pain [None]
  - Osteoarthritis [None]
